FAERS Safety Report 4820242-0 (Version None)
Quarter: 2005Q4

REPORT INFORMATION
  Report Type: 
  Country: None (occurrence: None)
  Receive Date: 20051012
  Receipt Date: 20050714
  Transmission Date: 20060501
  Serious: Yes (Hospitalization)
  Sender: FDA-Public Use
  Company Number: A03200502119

PATIENT
  Age: 60 Year
  Sex: Male

DRUGS (4)
  1. UROXATRAL [Suspect]
     Indication: PROSTATE EXAMINATION ABNORMAL
     Dosage: 10 MG OD - ORAL
     Route: 048
     Dates: start: 20050601, end: 20050701
  2. LISINOPRIL W/HYDROCHLOROTHIAZIDE [Concomitant]
  3. THYROID TAB [Concomitant]
  4. RABEPRAZOLE SODIUM [Concomitant]

REACTIONS (3)
  - DIZZINESS [None]
  - HYPERHIDROSIS [None]
  - SYNCOPE [None]
